FAERS Safety Report 17430957 (Version 1)
Quarter: 2020Q1

REPORT INFORMATION
  Report Type: Spontaneous
  Country: US (occurrence: US)
  Receive Date: 20200217
  Receipt Date: 20200217
  Transmission Date: 20200409
  Serious: Yes (Other)
  Sender: FDA-Public Use
  Company Number: None

PATIENT
  Sex: Female

DRUGS (1)
  1. 4-AMINOPYRIDINE [Suspect]
     Active Substance: DALFAMPRIDINE

REACTIONS (1)
  - Treatment failure [None]
